FAERS Safety Report 9994786 (Version 1)
Quarter: 2014Q1

REPORT INFORMATION
  Report Type: Spontaneous
  Country: JP (occurrence: JP)
  Receive Date: 20140311
  Receipt Date: 20140311
  Transmission Date: 20141002
  Serious: Yes (Other)
  Sender: FDA-Public Use
  Company Number: JP-JNJFOC-20140301707

PATIENT
  Sex: 0

DRUGS (1)
  1. ONEDURO PATCH [Suspect]
     Indication: CANCER PAIN
     Route: 062

REACTIONS (1)
  - Depressed level of consciousness [Unknown]
